FAERS Safety Report 6664068-4 (Version None)
Quarter: 2010Q2

REPORT INFORMATION
  Report Type: 
  Country: None (occurrence: None)
  Receive Date: 20100401
  Receipt Date: 20100330
  Transmission Date: 20101027
  Serious: Yes (Other)
  Sender: FDA-Public Use
  Company Number: A0852665A

PATIENT
  Age: 71 Year
  Sex: Male

DRUGS (4)
  1. ADVAIR DISKUS 100/50 [Suspect]
     Indication: CHRONIC OBSTRUCTIVE PULMONARY DISEASE
     Dosage: 1PUFF TWICE PER DAY
     Route: 055
     Dates: start: 20080101
  2. ZETIA [Concomitant]
  3. ANTI-CHOLESTEROL MEDICATION [Concomitant]
  4. HIGH BLOOD PRESSURE PILL [Concomitant]

REACTIONS (7)
  - ABDOMINAL PAIN UPPER [None]
  - BEDRIDDEN [None]
  - DIZZINESS [None]
  - DRUG ADMINISTRATION ERROR [None]
  - PAIN [None]
  - PRODUCT QUALITY ISSUE [None]
  - SYNCOPE [None]
